FAERS Safety Report 8632626 (Version 2)
Quarter: 2012Q4

REPORT INFORMATION
  Report Type: 
  Country: FR (occurrence: FR)
  Receive Date: 20120625
  Receipt Date: 20120904
  Transmission Date: 20130627
  Serious: Yes (Hospitalization, Other)
  Sender: FDA-Public Use
  Company Number: FR-ELI_LILLY_AND_COMPANY-FR201206004051

PATIENT
  Age: 74 Year
  Sex: Male

DRUGS (9)
  1. ALIMTA [Suspect]
     Indication: LUNG CANCER METASTATIC
     Dosage: 915 mg every 21 days
     Route: 042
     Dates: start: 20120426, end: 20120426
  2. COKENZEN [Concomitant]
     Dosage: 1 DF, qd
  3. ELISOR [Concomitant]
     Dosage: 40 mg, UNK
  4. PLAVIX [Concomitant]
     Dosage: 75 mg, UNK
  5. INEXIUM [Concomitant]
     Dosage: 20 mg, qd
  6. EZETROL [Concomitant]
     Dosage: 10 mg, qd
  7. SECTRAL [Concomitant]
     Dosage: 200 mg, UNK
  8. PAROXETINE [Concomitant]
     Dosage: 20 mg, qd
  9. CISPLATINE MERCK [Concomitant]
     Indication: LUNG CANCER METASTATIC
     Dosage: 137 mg/kg every 21 days
     Dates: start: 20120426, end: 20120426

REACTIONS (10)
  - Renal failure acute [Unknown]
  - Somnolence [Unknown]
  - Myoclonus [Unknown]
  - Urinary tract infection pseudomonal [Unknown]
  - Adrenal insufficiency [Unknown]
  - Leukopenia [Unknown]
  - Anaemia [Unknown]
  - Metabolic acidosis [Unknown]
  - Catheter placement [Unknown]
  - Infusion site extravasation [Recovered/Resolved]
